FAERS Safety Report 5879975-X (Version None)
Quarter: 2008Q3

REPORT INFORMATION
  Report Type: 
  Country: None (occurrence: None)
  Receive Date: 20080912
  Receipt Date: 20080903
  Transmission Date: 20090109
  Serious: Yes (Other)
  Sender: FDA-Public Use
  Company Number: US-ELI_LILLY_AND_COMPANY-US200809001218

PATIENT
  Age: 74 Year
  Sex: Female

DRUGS (17)
  1. HUMALOG [Suspect]
  2. HUMULIN N [Suspect]
  3. LIPITOR [Concomitant]
     Dosage: 10 MG, UNK
  4. CENTRUM SILVER [Concomitant]
  5. CALCIUM [Concomitant]
     Dosage: UNK, DAILY (1/D)
  6. MAGNESIUM SULFATE [Concomitant]
  7. POTASSIUM CHLORIDE [Concomitant]
  8. VITAMIN D [Concomitant]
  9. IRON [Concomitant]
  10. FOLIC ACID [Concomitant]
  11. FISH OIL [Concomitant]
     Dosage: UNK, DAILY (1/D)
  12. VITAMIN B-12 [Concomitant]
  13. LEVOTHYROXINE SODIUM [Concomitant]
  14. ALEVE [Concomitant]
  15. ASPIRIN [Concomitant]
  16. FLONASE [Concomitant]
  17. MIACALCIN [Concomitant]

REACTIONS (9)
  - CONTUSION [None]
  - EXCORIATION [None]
  - FALL [None]
  - FEELING ABNORMAL [None]
  - FEELING DRUNK [None]
  - FRUSTRATION [None]
  - OEDEMA PERIPHERAL [None]
  - PAIN [None]
  - ROAD TRAFFIC ACCIDENT [None]
